FAERS Safety Report 10056109 (Version 2)
Quarter: 2014Q2

REPORT INFORMATION
  Report Type: Spontaneous
  Country: NL (occurrence: NL)
  Receive Date: 20140403
  Receipt Date: 20140522
  Transmission Date: 20141212
  Serious: Yes (Other)
  Sender: FDA-Public Use
  Company Number: NL-TEVA-471947ISR

PATIENT
  Age: 53 Year
  Sex: Female

DRUGS (6)
  1. LITHIUMCARBONAAT PCH TABLET 400MG [Suspect]
     Indication: BIPOLAR DISORDER
     Route: 048
     Dates: start: 1997
  2. LITHIUMCARBONAAT PCH TABLET 400MG [Suspect]
     Route: 048
     Dates: start: 1998
  3. LORMETAZEPAM [Concomitant]
     Indication: SLEEP DISORDER
     Dosage: 4 MILLIGRAM DAILY;
     Route: 048
     Dates: start: 1997
  4. LORAZEPAM [Concomitant]
  5. RISPERDAL [Concomitant]
  6. SEROQUEL [Concomitant]

REACTIONS (2)
  - Renal failure [Recovering/Resolving]
  - Renal impairment [Recovering/Resolving]
